FAERS Safety Report 11218409 (Version 1)
Quarter: 2015Q2

REPORT INFORMATION
  Report Type: Spontaneous
  Country: US (occurrence: None)
  Receive Date: 20150624
  Receipt Date: 20150624
  Transmission Date: 20150821
  Serious: Yes (Hospitalization)
  Sender: FDA-Public Use
  Company Number: None

PATIENT
  Age: 21 Year
  Sex: Male

DRUGS (1)
  1. HUMIRA [Suspect]
     Active Substance: ADALIMUMAB
     Indication: CROHN^S DISEASE
     Dosage: ROUTE: SUBCUTANEOUS 057  STRENGTH: 40MG  DOSE FORM: INJECTABLE?FREQUENCY: EVERY OTHER WEEK?FIRST INJECTIONS (4) ON JUNE 10, 2015
     Route: 058
     Dates: start: 20150610

REACTIONS (2)
  - Disease progression [None]
  - Crohn^s disease [None]

NARRATIVE: CASE EVENT DATE: 20150617
